FAERS Safety Report 6510878-3 (Version None)
Quarter: 2009Q4

REPORT INFORMATION
  Report Type: 
  Country: None (occurrence: None)
  Receive Date: 20091222
  Receipt Date: 20090123
  Transmission Date: 20100525
  Serious: No
  Sender: FDA-Public Use
  Company Number: CA-ASTRAZENECA-2009UW02529

PATIENT
  Age: 902 Month
  Sex: Male
  Weight: 86.2 kg

DRUGS (4)
  1. CRESTOR [Suspect]
     Indication: HYPERCHOLESTEROLAEMIA
     Route: 048
     Dates: start: 20080807, end: 20081001
  2. CRESTOR [Suspect]
     Route: 048
     Dates: start: 20081001, end: 20081001
  3. CRESTOR [Suspect]
     Route: 048
     Dates: start: 20081001
  4. QUININE [Concomitant]
     Indication: MUSCLE SPASMS

REACTIONS (1)
  - NIGHT SWEATS [None]
